FAERS Safety Report 8294401-1 (Version None)
Quarter: 2012Q2

REPORT INFORMATION
  Report Type: 
  Country: None (occurrence: None)
  Receive Date: 20120418
  Receipt Date: 20120413
  Transmission Date: 20120825
  Serious: Yes (Congenital Anomaly, Other)
  Sender: FDA-Public Use
  Company Number: US-PFIZER INC-2011270397

PATIENT
  Sex: Female

DRUGS (5)
  1. EFFEXOR XR [Concomitant]
     Dosage: 150 MG, UNK
     Route: 064
     Dates: start: 20050616
  2. TIZANIDINE [Concomitant]
     Dosage: 4 MG, UNK
     Route: 064
     Dates: start: 20051022, end: 20051101
  3. TIZANIDINE [Concomitant]
     Dosage: 2 MG, UNK
     Route: 064
     Dates: start: 20051107
  4. ZOLOFT [Suspect]
     Dosage: 50 MG, UNK
     Route: 064
     Dates: start: 20050830, end: 20060201
  5. MULTI-VITAMINS [Concomitant]
     Dosage: UNK
     Route: 064
     Dates: start: 20050714

REACTIONS (5)
  - MATERNAL EXPOSURE TIMING UNSPECIFIED [None]
  - DOUBLE OUTLET RIGHT VENTRICLE [None]
  - VENTRICULAR SEPTAL DEFECT [None]
  - TRANSPOSITION OF THE GREAT VESSELS [None]
  - CRANIOSYNOSTOSIS [None]
